FAERS Safety Report 6194484-9 (Version None)
Quarter: 2009Q2

REPORT INFORMATION
  Report Type: 
  Country: None (occurrence: None)
  Receive Date: 20090519
  Receipt Date: 20090511
  Transmission Date: 20091009
  Serious: Yes (Other)
  Sender: FDA-Public Use
  Company Number: US-JNJFOC-20090502517

PATIENT
  Sex: Female
  Weight: 72.58 kg

DRUGS (11)
  1. FENTANYL TRANSDERMAL SYSTEM [Suspect]
     Indication: BONE PAIN
     Route: 062
  2. FENTANYL TRANSDERMAL SYSTEM [Suspect]
     Indication: NECK PAIN
     Route: 062
  3. FENTANYL TRANSDERMAL SYSTEM [Suspect]
     Indication: HEADACHE
     Route: 062
  4. DURAGESIC-100 [Suspect]
     Indication: BONE PAIN
     Route: 062
  5. DURAGESIC-100 [Suspect]
     Indication: NECK PAIN
     Route: 062
  6. DURAGESIC-100 [Suspect]
     Indication: HEADACHE
     Route: 062
  7. DIAZEPAM [Concomitant]
     Indication: MUSCLE RELAXANT THERAPY
     Route: 048
  8. DIAZEPAM [Concomitant]
     Indication: DEPRESSION
     Route: 048
  9. WELLBUTRIN SR [Concomitant]
     Indication: DEPRESSION
     Dosage: 150.0 MG, 2 TABLETS DAILY
     Route: 048
  10. ROBAXIN [Concomitant]
     Indication: MUSCLE RELAXANT THERAPY
     Route: 048
  11. HYDROCODONE BITARTRATE [Concomitant]
     Indication: PAIN
     Dosage: 10/500 MG ONE TABLET
     Route: 048

REACTIONS (4)
  - ACCIDENTAL EXPOSURE [None]
  - HYPOAESTHESIA ORAL [None]
  - INTENTIONAL DRUG MISUSE [None]
  - WRONG TECHNIQUE IN DRUG USAGE PROCESS [None]
